FAERS Safety Report 25700553 (Version 1)
Quarter: 2025Q3

REPORT INFORMATION
  Report Type: Spontaneous
  Country: EU (occurrence: EU)
  Receive Date: 20250819
  Receipt Date: 20250819
  Transmission Date: 20251021
  Serious: Yes (Death, Hospitalization, Other)
  Sender: ELI LILLY AND COMPANY
  Company Number: EU-ELI_LILLY_AND_COMPANY-FR202508014100

PATIENT
  Age: 82 Year
  Sex: Female
  Weight: 60 kg

DRUGS (9)
  1. ABEMACICLIB [Suspect]
     Active Substance: ABEMACICLIB
     Indication: Invasive ductal breast carcinoma
     Dosage: 150 MG, BID
     Route: 048
     Dates: start: 20250207, end: 20250221
  2. ABEMACICLIB [Suspect]
     Active Substance: ABEMACICLIB
     Dosage: 100 MG, BID
     Route: 048
     Dates: start: 20250305, end: 20250505
  3. BACTRIM [Suspect]
     Active Substance: SULFAMETHOXAZOLE\TRIMETHOPRIM
     Indication: Pneumocystis jirovecii pneumonia
     Route: 042
     Dates: start: 20250604
  4. BACTRIM [Suspect]
     Active Substance: SULFAMETHOXAZOLE\TRIMETHOPRIM
     Route: 048
     Dates: end: 20250624
  5. LETROZOLE [Concomitant]
     Active Substance: LETROZOLE
     Indication: Product used for unknown indication
     Dosage: 2.5 MG, DAILY
  6. PRAVASTATIN [Concomitant]
     Active Substance: PRAVASTATIN
     Indication: Product used for unknown indication
  7. HYDROCHLOROTHIAZIDE\IRBESARTAN [Concomitant]
     Active Substance: HYDROCHLOROTHIAZIDE\IRBESARTAN
     Indication: Product used for unknown indication
     Dosage: 1 DOSAGE FORM, EACH MORNING
  8. ESOMEPRAZOLE [Concomitant]
     Active Substance: ESOMEPRAZOLE
     Indication: Product used for unknown indication
     Dosage: 1 DOSAGE FORM, DAILY
  9. PREDNISOLONE [Concomitant]
     Active Substance: PREDNISOLONE
     Indication: Product used for unknown indication

REACTIONS (21)
  - Acute respiratory failure [Fatal]
  - Pulmonary embolism [Fatal]
  - Malaise [Unknown]
  - Bronchiectasis [Unknown]
  - Fibrin D dimer increased [Unknown]
  - General physical health deterioration [Unknown]
  - Hyperkalaemia [Unknown]
  - Pneumocystis jirovecii pneumonia [Unknown]
  - Sciatica [Unknown]
  - Hepatic cyst [Unknown]
  - Haematoma [Unknown]
  - Haematemesis [Unknown]
  - Tachycardia [Unknown]
  - Pain in extremity [Unknown]
  - Cardiac failure [Unknown]
  - Renal failure [Unknown]
  - Asthenia [Unknown]
  - Anaemia [Unknown]
  - Hyponatraemia [Unknown]
  - Inflammatory marker increased [Unknown]
  - Hypothermia [Unknown]

NARRATIVE: CASE EVENT DATE: 20250221
